FAERS Safety Report 4405546-8 (Version None)
Quarter: 2004Q3

REPORT INFORMATION
  Report Type: 
  Country: None (occurrence: None)
  Receive Date: 20040723
  Receipt Date: 20030926
  Transmission Date: 20050211
  Serious: No
  Sender: FDA-Public Use
  Company Number: US-GLAXOSMITHKLINE-A0427683A

PATIENT
  Age: 55 Year
  Sex: Male

DRUGS (9)
  1. AVANDIA [Suspect]
     Dosage: 8MG PER DAY
     Route: 048
  2. GEMFIBROZIL [Concomitant]
  3. FENOPROFEN CALCIUM [Concomitant]
  4. GLUCOTROL XL [Concomitant]
  5. METOPROLOL [Concomitant]
  6. ALTACE [Concomitant]
  7. FLEXERIL [Concomitant]
  8. HYDROCODONE [Concomitant]
  9. ASPIRIN [Concomitant]

REACTIONS (1)
  - WEIGHT INCREASED [None]
